FAERS Safety Report 20771914 (Version 1)
Quarter: 2022Q2

REPORT INFORMATION
  Report Type: Spontaneous
  Country: CA (occurrence: CA)
  Receive Date: 20220501
  Receipt Date: 20220501
  Transmission Date: 20220720
  Serious: Yes (Other)
  Sender: FDA-Public Use
  Company Number: CA-UCBSA-2022023318

PATIENT
  Age: 42 Year
  Sex: Female

DRUGS (4)
  1. CIMZIA [Suspect]
     Active Substance: CERTOLIZUMAB PEGOL
     Indication: Psoriatic arthropathy
     Dosage: 400 MILLIGRAM, UNK
     Route: 058
  2. METHOTREXATE [Suspect]
     Active Substance: METHOTREXATE
     Indication: Product used for unknown indication
  3. EPIPEN JR [Concomitant]
     Active Substance: EPINEPHRINE
     Indication: Gait disturbance
     Route: 030
  4. BENADRYL [Concomitant]
     Active Substance: DIPHENHYDRAMINE HYDROCHLORIDE
     Indication: Hypersensitivity

REACTIONS (6)
  - Arthropod bite [Unknown]
  - Disturbance in attention [Unknown]
  - Fluid retention [Unknown]
  - Gait disturbance [Unknown]
  - Hypersensitivity [Unknown]
  - Product dose omission issue [Unknown]
